FAERS Safety Report 19912576 (Version 1)
Quarter: 2021Q4

REPORT INFORMATION
  Report Type: Spontaneous
  Country: BE (occurrence: BE)
  Receive Date: 20211004
  Receipt Date: 20211004
  Transmission Date: 20220303
  Serious: Yes (Other)
  Sender: FDA-Public Use
  Company Number: BE-SA-2021SA169952

PATIENT
  Age: 74 Year
  Weight: 95 kg

DRUGS (12)
  1. VORICONAZOLE [Interacting]
     Active Substance: VORICONAZOLE
     Indication: Aspergillus infection
     Dosage: 400 MG, Q12H (MAINTENANCE DOSE)
  2. VORICONAZOLE [Interacting]
     Active Substance: VORICONAZOLE
     Dosage: 600 MG, Q12H (LOADING DOSE OF 600 MG Q12H ON THE FIRST DAY)
  3. RIFAMPIN [Interacting]
     Active Substance: RIFAMPIN
     Indication: Staphylococcal sepsis
     Dosage: 300 MG, Q8H
     Route: 042
  4. RIFAMPIN [Interacting]
     Active Substance: RIFAMPIN
     Indication: Staphylococcal sepsis
     Dosage: UNK (RESTARTED)
  5. ISAVUCONAZOLE [Interacting]
     Active Substance: ISAVUCONAZOLE
     Indication: Aspergillus infection
     Dosage: 200 MG, QD (MAINTENANCE DOSE)
     Route: 042
  6. ISAVUCONAZOLE [Interacting]
     Active Substance: ISAVUCONAZOLE
     Dosage: 200 MG, Q8H (LOADING DOSE)
     Route: 042
  7. ISAVUCONAZOLE [Interacting]
     Active Substance: ISAVUCONAZOLE
     Indication: Aspergillus infection
     Dosage: 500 MG (DAY 14)
     Route: 065
  8. ISAVUCONAZOLE [Interacting]
     Active Substance: ISAVUCONAZOLE
     Dosage: 300 MG (INCREASED TO 300 MG (DAY 8)
     Route: 065
  9. FLUCLOXACILLIN [Interacting]
     Active Substance: FLUCLOXACILLIN
     Indication: Staphylococcal sepsis
     Dosage: 2 G, Q4H
     Route: 042
  10. GENTAMICIN [Concomitant]
     Active Substance: GENTAMICIN
     Indication: Staphylococcal sepsis
     Dosage: 450 MG (ONE DOSE) (1X)
  11. CASPOFUNGIN [Concomitant]
     Active Substance: CASPOFUNGIN
     Indication: Aspergillus infection
     Dosage: 70 MILLIGRAM, QD (70 MG, Q24H)
  12. RIFABUTIN [Concomitant]
     Active Substance: RIFABUTIN
     Indication: Staphylococcal sepsis
     Dosage: UNK
     Route: 048

REACTIONS (5)
  - Hepatitis acute [Unknown]
  - Drug interaction [Unknown]
  - Hepatic function abnormal [Unknown]
  - Drug level below therapeutic [Unknown]
  - Product use in unapproved indication [Unknown]
